FAERS Safety Report 5346874-1 (Version None)
Quarter: 2007Q2

REPORT INFORMATION
  Report Type: 
  Country: None (occurrence: None)
  Receive Date: 20070604
  Receipt Date: 20070517
  Transmission Date: 20071010
  Serious: Yes (Other)
  Sender: FDA-Public Use
  Company Number: 6034030

PATIENT
  Age: 88 Year
  Sex: Female

DRUGS (3)
  1. OMEPRAZOLE [Suspect]
     Indication: DRUG USE FOR UNKNOWN INDICATION
     Dosage: 40,000 MG (20 MG, 2 IN 1 D)
  2. CLARITHROMYCIN [Suspect]
  3. BENZYLPENICILLIN                     (BENZYLPENICILLIN) [Suspect]

REACTIONS (4)
  - DYSPNOEA [None]
  - FLUID RETENTION [None]
  - HYPERSENSITIVITY [None]
  - LOWER RESPIRATORY TRACT INFECTION [None]
